FAERS Safety Report 9828334 (Version 1)
Quarter: 2014Q1

REPORT INFORMATION
  Report Type: Spontaneous
  Country: US (occurrence: US)
  Receive Date: 20140117
  Receipt Date: 20140117
  Transmission Date: 20141002
  Serious: Yes (Congenital Anomaly)
  Sender: FDA-Public Use
  Company Number: US-GLAXOSMITHKLINE-A1056171B

PATIENT
  Sex: Female

DRUGS (2)
  1. ZOFRAN [Suspect]
     Indication: NAUSEA
     Route: 064
     Dates: start: 20130215
  2. PRENATAL VITAMINS [Concomitant]

REACTIONS (4)
  - Cleft lip [Not Recovered/Not Resolved]
  - Cleft palate [Not Recovered/Not Resolved]
  - Cleft lip repair [Unknown]
  - Foetal exposure during pregnancy [Unknown]
